FAERS Safety Report 6249575-0 (Version None)
Quarter: 2009Q2

REPORT INFORMATION
  Report Type: 
  Country: None (occurrence: None)
  Receive Date: 20090624
  Receipt Date: 20090611
  Transmission Date: 20091009
  Serious: Yes (Other)
  Sender: FDA-Public Use
  Company Number: 230093M09GBR

PATIENT
  Sex: Female

DRUGS (1)
  1. REBIF [Suspect]
     Dosage: 44 MCG

REACTIONS (4)
  - ABDOMINAL MASS [None]
  - ADRENAL MASS [None]
  - BRAIN MASS [None]
  - CONVULSION [None]
